FAERS Safety Report 9800648 (Version 3)
Quarter: 2014Q3

REPORT INFORMATION
  Report Type: Spontaneous
  Country: JP (occurrence: JP)
  Receive Date: 20140107
  Receipt Date: 20140715
  Transmission Date: 20150326
  Serious: Yes (Death)
  Sender: FDA-Public Use
  Company Number: JP-BRISTOL-MYERS SQUIBB COMPANY-19960897

PATIENT
  Age: 83 Year
  Sex: Female

DRUGS (10)
  1. GLYCORAN [Concomitant]
     Active Substance: GLYCERIN
     Indication: DIABETES MELLITUS
     Route: 048
     Dates: end: 20121012
  2. PIPERACILLIN [Concomitant]
     Active Substance: PIPERACILLIN
     Indication: PNEUMONIA
     Dates: start: 20131022, end: 20131023
  3. MEROPENEM. [Concomitant]
     Active Substance: MEROPENEM
     Indication: PYREXIA
     Dosage: DOSAGE:1 GM (1 IN 1D)?23OCT13-29OCT13 (6D)?20DEC13-24DEC13 (4D)
     Dates: start: 20131023, end: 20131224
  4. METGLUCO [Suspect]
     Active Substance: METFORMIN HYDROCHLORIDE
     Indication: DIABETES MELLITUS
     Dosage: DOSAGE:500MG/DAY
     Route: 048
     Dates: start: 20121013, end: 20131220
  5. THEODUR G [Concomitant]
     Indication: ASTHMA
     Route: 048
  6. SITAGLIPTIN PHOSPHATE [Concomitant]
     Active Substance: SITAGLIPTIN PHOSPHATE
     Indication: DIABETES MELLITUS
     Dosage: STARTED ON UNKONWN DATE?RESTARTED:09AUG13
     Route: 048
     Dates: end: 20130813
  7. VILDAGLIPTIN [Concomitant]
     Active Substance: VILDAGLIPTIN
     Indication: DIABETES MELLITUS
     Route: 048
     Dates: start: 20130809, end: 20131220
  8. MAGMITT [Concomitant]
     Active Substance: MAGNESIUM OXIDE
     Indication: CONSTIPATION
     Route: 048
  9. DOPAMINE HCL [Concomitant]
     Active Substance: DOPAMINE HYDROCHLORIDE
     Indication: BLOOD PRESSURE DECREASED
     Dates: start: 20131225, end: 20131225
  10. MEROPENEM. [Concomitant]
     Active Substance: MEROPENEM
     Indication: PNEUMONIA ASPIRATION
     Dosage: DOSAGE:1 GM (1 IN 1D)?23OCT13-29OCT13 (6D)?20DEC13-24DEC13 (4D)
     Dates: start: 20131023, end: 20131224

REACTIONS (1)
  - Melaena [Fatal]

NARRATIVE: CASE EVENT DATE: 20131219
